FAERS Safety Report 14548832 (Version 1)
Quarter: 2018Q1

REPORT INFORMATION
  Report Type: Spontaneous
  Country: US (occurrence: US)
  Receive Date: 20180219
  Receipt Date: 20180219
  Transmission Date: 20180509
  Serious: No
  Sender: FDA-Public Use
  Company Number: US-ROCHE-1933774

PATIENT
  Sex: Female
  Weight: 104.42 kg

DRUGS (1)
  1. XOLAIR [Suspect]
     Active Substance: OMALIZUMAB
     Indication: HYPERSENSITIVITY
     Dosage: THERAPY RECEIVED DATE: 28/APR/2017
     Route: 058
     Dates: start: 20170303

REACTIONS (2)
  - Drug ineffective [Unknown]
  - Anosmia [Not Recovered/Not Resolved]
